FAERS Safety Report 17564175 (Version 1)
Quarter: 2020Q1

REPORT INFORMATION
  Report Type: Report from Study
  Country: BE (occurrence: BE)
  Receive Date: 20200320
  Receipt Date: 20200320
  Transmission Date: 20200409
  Serious: Yes (Hospitalization)
  Sender: FDA-Public Use
  Company Number: BE-EMD SERONO-9073152

PATIENT
  Sex: Male

DRUGS (1)
  1. REBIF [Suspect]
     Active Substance: INTERFERON BETA-1A
     Indication: PRODUCT USED FOR UNKNOWN INDICATION
     Route: 058
     Dates: start: 20080325

REACTIONS (8)
  - Pancreatic disorder [Unknown]
  - Bladder disorder [Unknown]
  - Fall [Unknown]
  - Eye colour change [Unknown]
  - Sleep apnoea syndrome [Unknown]
  - Weight decreased [Unknown]
  - Cholelithiasis [Unknown]
  - Abdominal distension [Unknown]
